FAERS Safety Report 4782532-X (Version None)
Quarter: 2005Q3

REPORT INFORMATION
  Report Type: 
  Country: None (occurrence: None)
  Receive Date: 20050929
  Receipt Date: 20050222
  Transmission Date: 20060218
  Serious: Yes (Other)
  Sender: FDA-Public Use
  Company Number: 396978

PATIENT
  Sex: Female

DRUGS (5)
  1. COREG [Suspect]
     Indication: DRUG USE FOR UNKNOWN INDICATION
     Dosage: 1.562MG PER DAY
     Route: 048
     Dates: start: 20041228
  2. DIGOXIN [Concomitant]
  3. COUMADIN [Concomitant]
  4. MAGNESIUM [Concomitant]
  5. SPIRONOLACTONE [Concomitant]

REACTIONS (4)
  - DYSPNOEA [None]
  - SWELLING [None]
  - SYNCOPE [None]
  - WEIGHT INCREASED [None]
